FAERS Safety Report 25804226 (Version 1)
Quarter: 2025Q3

REPORT INFORMATION
  Report Type: Spontaneous
  Country: IN (occurrence: IN)
  Receive Date: 20250915
  Receipt Date: 20250915
  Transmission Date: 20251020
  Serious: Yes (Other)
  Sender: ASCENT PHARMACEUTICALS INC
  Company Number: IN-ASCENT-2025ASLIT00214

PATIENT
  Age: 35 Year
  Sex: Male

DRUGS (3)
  1. GABAPENTIN [Suspect]
     Active Substance: GABAPENTIN
     Indication: Anxiety
     Route: 065
  2. GABAPENTIN [Suspect]
     Active Substance: GABAPENTIN
     Route: 065
  3. GABAPENTIN [Suspect]
     Active Substance: GABAPENTIN
     Route: 065

REACTIONS (8)
  - Drug dependence [Unknown]
  - Iron deficiency [Unknown]
  - Vitamin D deficiency [Unknown]
  - Vitamin B12 deficiency [Unknown]
  - Weight increased [Unknown]
  - Withdrawal syndrome [Unknown]
  - General physical health deterioration [Unknown]
  - Intentional overdose [Unknown]
